FAERS Safety Report 8403310-6 (Version None)
Quarter: 2012Q2

REPORT INFORMATION
  Report Type: 
  Country: None (occurrence: None)
  Receive Date: 20120601
  Receipt Date: 20120124
  Transmission Date: 20120825
  Serious: Yes (Other)
  Sender: FDA-Public Use
  Company Number: JP-BRISTOL-MYERS SQUIBB COMPANY-15971088

PATIENT
  Age: 40 Year
  Sex: Female

DRUGS (3)
  1. ABILIFY [Suspect]
     Indication: SCHIZOPHRENIA
     Dosage: DF: 3MG AND 1.5MG
     Route: 048
  2. ABILIFY [Suspect]
     Indication: SCHIZOPHRENIA
     Dosage: STRENGTH-1%.PM
     Route: 048
     Dates: start: 20110701
  3. ABILIFY [Suspect]
     Indication: SCHIZOPHRENIA
     Dosage: 1 %
     Route: 048

REACTIONS (7)
  - DEPRESSIVE SYMPTOM [None]
  - WEIGHT DECREASED [None]
  - MEMORY IMPAIRMENT [None]
  - WEIGHT INCREASED [None]
  - MENTAL IMPAIRMENT [None]
  - DEMENTIA ALZHEIMER'S TYPE [None]
  - COUGH [None]
